FAERS Safety Report 7207331-0 (Version None)
Quarter: 2010Q4

REPORT INFORMATION
  Report Type: 
  Country: None (occurrence: None)
  Receive Date: 20101221
  Receipt Date: 20101209
  Transmission Date: 20110411
  Serious: Yes (Hospitalization, Disabling)
  Sender: FDA-Public Use
  Company Number: TRP_07450_2010

PATIENT

DRUGS (5)
  1. INFERGEN [Suspect]
     Indication: HEPATITIS C
     Dosage: 24 ?G QD, [DOSE REDUDED TO 15 MCG DAILY IN TWO SUBJECTIONS] SUBCUTANEOUS
     Route: 058
  2. INFERGEN [Suspect]
     Indication: HEPATITIS C
     Dosage: 24 ?G QD, [DOSE REDUDED TO 15 MCG DAILY IN TWO SUBJECTIONS] SUBCUTANEOUS
     Route: 058
  3. RIBAVIRIN [Suspect]
     Indication: HEPATITIS C
     Dosage: PRIOR THERAPY; 1000-1200 MG/DAY; DOSE REDUCED IN FIVE SUBJECTS
  4. PEGINTEREFERON ALFA-2A [Suspect]
     Indication: HEPATITIS C
     Dosage: DF
  5. PEGINTERFERON ALFA-2B [Suspect]
     Indication: HEPATITIS C
     Dosage: DF

REACTIONS (25)
  - ABDOMINAL WALL ABSCESS [None]
  - ANAEMIA [None]
  - ANXIETY [None]
  - ARRHYTHMIA [None]
  - DECREASED APPETITE [None]
  - DEHYDRATION [None]
  - DEPRESSION [None]
  - DRUG INTOLERANCE [None]
  - DRUG TOXICITY [None]
  - FATIGUE [None]
  - HEPATIC FIBROSIS [None]
  - HEPATITIS C RNA INCREASED [None]
  - HYPOTENSION [None]
  - INFLUENZA LIKE ILLNESS [None]
  - INJECTION SITE INFECTION [None]
  - INSOMNIA [None]
  - LOSS OF CONSCIOUSNESS [None]
  - METABOLIC DISORDER [None]
  - NO THERAPEUTIC RESPONSE [None]
  - PLATELET COUNT DECREASED [None]
  - THERAPEUTIC RESPONSE DECREASED [None]
  - TREATMENT FAILURE [None]
  - VENTRICULAR TACHYCARDIA [None]
  - WEIGHT DECREASED [None]
  - WHITE BLOOD CELL COUNT DECREASED [None]
